FAERS Safety Report 6933052-5 (Version None)
Quarter: 2010Q3

REPORT INFORMATION
  Report Type: 
  Country: None (occurrence: None)
  Receive Date: 20100818
  Receipt Date: 20100818
  Transmission Date: 20110219
  Serious: Yes (Hospitalization)
  Sender: FDA-Public Use
  Company Number: None

PATIENT
  Age: 57 Year
  Sex: Male
  Weight: 136.4 kg

DRUGS (11)
  1. METOLAZONE [Suspect]
     Indication: CARDIAC FAILURE
     Dosage: 5MG DAILY AS NEEDED ORAL
     Route: 048
     Dates: start: 20100305, end: 20100311
  2. METOLAZONE [Suspect]
     Indication: WEIGHT INCREASED
     Dosage: 5MG DAILY AS NEEDED ORAL
     Route: 048
     Dates: start: 20100305, end: 20100311
  3. TETRACYCLINE [Suspect]
     Indication: UPPER RESPIRATORY TRACT INFECTION
     Dosage: TETRACYCLINE UNKNOWN ORAL
     Route: 048
     Dates: start: 20100305, end: 20100311
  4. FEXOFENADINE HCL [Concomitant]
  5. LISINOPRIL [Concomitant]
  6. MONTELUKAST SODIUM [Concomitant]
  7. CARVEDILOL [Concomitant]
  8. FUROSEMIDE [Concomitant]
  9. MELOLAZONE [Concomitant]
  10. ASPIRIN [Concomitant]
  11. ATORVASTATIN [Concomitant]

REACTIONS (8)
  - ABDOMINAL PAIN UPPER [None]
  - FLANK PAIN [None]
  - HUNGER [None]
  - NAUSEA [None]
  - PANCREATITIS [None]
  - RENAL FAILURE ACUTE [None]
  - SELF-MEDICATION [None]
  - UPPER RESPIRATORY TRACT INFECTION [None]
